FAERS Safety Report 19900697 (Version 1)
Quarter: 2021Q3

REPORT INFORMATION
  Report Type: Spontaneous
  Country: US (occurrence: US)
  Receive Date: 20210930
  Receipt Date: 20210930
  Transmission Date: 20211014
  Serious: Yes (Life-Threatening)
  Sender: FDA-Public Use
  Company Number: None

PATIENT
  Age: 61 Year
  Sex: Female
  Weight: 91.35 kg

DRUGS (6)
  1. PROAIR HFA [Concomitant]
     Active Substance: ALBUTEROL SULFATE
  2. DICLOFENAC 1% TOPICAL GEL [Concomitant]
  3. REGEN?COV [Suspect]
     Active Substance: CASIRIVIMAB\IMDEVIMAB
     Indication: COVID-19
     Dosage: ?          OTHER FREQUENCY:ONCE;?
     Route: 041
     Dates: start: 20210928, end: 20210928
  4. LORATADINE 10 MG [Concomitant]
     Active Substance: LORATADINE
  5. METHOCARBAMOL 500 MG [Concomitant]
     Active Substance: METHOCARBAMOL
  6. PREGABALIN 75 MG [Concomitant]
     Active Substance: PREGABALIN

REACTIONS (3)
  - Paraesthesia oral [None]
  - Circumoral oedema [None]
  - Swollen tongue [None]

NARRATIVE: CASE EVENT DATE: 20210928
